FAERS Safety Report 11119163 (Version 2)
Quarter: 2015Q2

REPORT INFORMATION
  Report Type: Report from Study
  Country: US (occurrence: US)
  Receive Date: 20150518
  Receipt Date: 20150604
  Transmission Date: 20150821
  Serious: Yes (Other)
  Sender: FDA-Public Use
  Company Number: US-ACTELION-A-NJ2015-117854

PATIENT
  Age: 65 Year
  Sex: Male

DRUGS (3)
  1. ALTACE [Concomitant]
     Active Substance: RAMIPRIL
  2. MECHLORETHAMINE [Suspect]
     Active Substance: MECHLORETHAMINE
     Indication: MYCOSIS FUNGOIDES
     Dosage: UNK
     Route: 061
     Dates: start: 20140530
  3. PROPECIA [Concomitant]
     Active Substance: FINASTERIDE

REACTIONS (1)
  - Aneurysm [Unknown]
